FAERS Safety Report 14958012 (Version 1)
Quarter: 2018Q2

REPORT INFORMATION
  Report Type: Spontaneous
  Country: US (occurrence: US)
  Receive Date: 20180531
  Receipt Date: 20180531
  Transmission Date: 20180711
  Serious: No
  Sender: FDA-Public Use
  Company Number: US-ENDO PHARMACEUTICALS INC-2017-005860

PATIENT
  Age: 10 Year
  Sex: Female
  Weight: 48 kg

DRUGS (2)
  1. SUPPRELIN LA [Suspect]
     Active Substance: HISTRELIN ACETATE
     Indication: PRODUCT USED FOR UNKNOWN INDICATION
     Dosage: UNK, ONE IMPLANT, UNKNOWN
     Route: 058
     Dates: start: 201603, end: 20171026
  2. SUPPRELIN LA [Suspect]
     Active Substance: HISTRELIN ACETATE
     Dosage: UNK ONE IMPLANT, UNKNOWN
     Route: 058
     Dates: start: 20150226, end: 201603

REACTIONS (3)
  - Incorrect drug administration duration [Not Recovered/Not Resolved]
  - Device breakage [Unknown]
  - Procedural complication [Not Recovered/Not Resolved]

NARRATIVE: CASE EVENT DATE: 201704
